FAERS Safety Report 6993840-6 (Version None)
Quarter: 2010Q3

REPORT INFORMATION
  Report Type: 
  Country: None (occurrence: None)
  Receive Date: 20100917
  Receipt Date: 20071115
  Transmission Date: 20110219
  Serious: Yes (Other)
  Sender: FDA-Public Use
  Company Number: US-ASTRAZENECA-2006UW24333

PATIENT
  Age: 16027 Day
  Sex: Male
  Weight: 109.8 kg

DRUGS (19)
  1. SEROQUEL [Suspect]
     Indication: BIPOLAR DISORDER
     Dosage: 100-500 MG
     Route: 048
     Dates: start: 20020819
  2. SEROQUEL [Suspect]
     Indication: SCHIZOPHRENIA
     Dosage: 100-500 MG
     Route: 048
     Dates: start: 20020819
  3. SEROQUEL [Suspect]
     Indication: DEPRESSION
     Dosage: 100-500 MG
     Route: 048
     Dates: start: 20020819
  4. SEROQUEL [Suspect]
     Route: 048
  5. SEROQUEL [Suspect]
     Route: 048
  6. SEROQUEL [Suspect]
     Route: 048
  7. ABILIFY [Concomitant]
  8. GEODON [Concomitant]
  9. HALDOL [Concomitant]
  10. ZYPREXA [Concomitant]
     Dates: start: 19960101, end: 20020101
  11. SYMBYAX [Concomitant]
  12. TRILEPTAL [Concomitant]
     Dosage: 300 MG 2 TABLET BID
     Route: 048
     Dates: start: 20020819
  13. ASPIRIN [Concomitant]
     Indication: PAIN
     Dosage: 81 MG 2 QD, 81 MG QD
     Route: 048
     Dates: start: 20030904
  14. LISINOPRIL AND HYDROCHLORTHIAZIDE [Concomitant]
     Dosage: 20/25 MG DAILY
     Dates: start: 20051107
  15. CLONAZEPAM [Concomitant]
     Dosage: 0.5- 1 MG
     Dates: start: 20050630
  16. LORTAB [Concomitant]
     Dosage: 7.5 -10 MG
     Dates: start: 20050708
  17. ACTOS [Concomitant]
     Dosage: 30-45 MG
     Dates: start: 20021003
  18. PROZAC [Concomitant]
     Dates: start: 20051107
  19. NIFEDIPINE [Concomitant]
     Dates: start: 20051107

REACTIONS (6)
  - BLOOD GLUCOSE INCREASED [None]
  - DIABETES MELLITUS [None]
  - DIABETES MELLITUS INADEQUATE CONTROL [None]
  - INSULIN-REQUIRING TYPE 2 DIABETES MELLITUS [None]
  - KETOACIDOSIS [None]
  - TYPE 1 DIABETES MELLITUS [None]
